FAERS Safety Report 8153462-0 (Version None)
Quarter: 2012Q1

REPORT INFORMATION
  Report Type: 
  Country: None (occurrence: None)
  Receive Date: 20120221
  Receipt Date: 20120206
  Transmission Date: 20120608
  Serious: Yes (Death)
  Sender: FDA-Public Use
  Company Number: KH-ROCHE-1029330

PATIENT
  Sex: Female
  Weight: 12 kg

DRUGS (15)
  1. TAMIFLU [Suspect]
     Indication: PRODUCT USED FOR UNKNOWN INDICATION
     Dates: start: 20110813, end: 20110814
  2. ACETAMINOPHEN [Concomitant]
     Dates: start: 20110807, end: 20110811
  3. ACETAMINOPHEN [Concomitant]
     Dates: start: 20110812, end: 20110814
  4. ZINACEF [Concomitant]
     Dates: start: 20110812, end: 20110814
  5. HYDROCORTISONE [Concomitant]
     Dates: start: 20110813, end: 20110814
  6. LANOXIN [Concomitant]
     Dates: start: 20110813, end: 20110814
  7. AMOXICILLIN [Concomitant]
     Dates: start: 20110807, end: 20110809
  8. CEFTRIAXONE [Concomitant]
     Dates: start: 20110811, end: 20110812
  9. AUGMENTIN '125' [Concomitant]
     Dates: start: 20110812, end: 20110812
  10. ROCEPHIN [Concomitant]
     Dates: start: 20110812, end: 20110812
  11. LACTATED RINGER'S [Concomitant]
     Dates: start: 20110809, end: 20110810
  12. LASIX [Concomitant]
     Dates: start: 20110813, end: 20110813
  13. RIFATER [Concomitant]
     Dates: start: 20110812, end: 20110814
  14. OFLOXACIN [Concomitant]
     Dates: start: 20110814, end: 20110814
  15. CAPTOPRIL [Concomitant]
     Dates: start: 20110813, end: 20110814

REACTIONS (3)
  - ACUTE RESPIRATORY DISTRESS SYNDROME [None]
  - MULTI-ORGAN FAILURE [None]
  - PNEUMONIA [None]
